FAERS Safety Report 7301167-8 (Version None)
Quarter: 2011Q1

REPORT INFORMATION
  Report Type: 
  Country: None (occurrence: None)
  Receive Date: 20110218
  Receipt Date: 20110207
  Transmission Date: 20110831
  Serious: Yes (Other)
  Sender: FDA-Public Use
  Company Number: DE-SANOFI-AVENTIS-2010SA039807

PATIENT
  Age: 75 Year
  Sex: Male
  Weight: 98 kg

DRUGS (14)
  1. CALCITRIOL [Concomitant]
     Dosage: DAILY DOSE: 1 DF DOSAGE FORM EVERY DAYS
     Route: 065
  2. ASPIRIN [Concomitant]
     Dosage: DAILY DOSE: 1 DF DOSAGE FORM EVERY DAYS
     Route: 065
  3. BELOC-ZOK [Concomitant]
     Indication: HYPERTENSION
     Dosage: DAILY DOSE: 95 MG MILLGRAM(S) EVERY DAYS
     Route: 048
  4. SIMVASTATIN [Concomitant]
     Dosage: DOSAGE: 0-0-1/2-0
     Route: 065
  5. FERRLECIT [Concomitant]
     Dosage: DAILY DOSE: 1 DF DOSAGE FORM EVERY WEEKS
     Route: 042
  6. RAMIPRIL [Concomitant]
     Dosage: DAILY DOSE: 5 MG MILLGRAM(S) EVERY DAYS
     Route: 065
  7. OXYBUTYNIN [Concomitant]
     Dosage: DAILY DOSE: 1 DF DOSAGE FORM EVERY DAYS
     Route: 065
  8. PROCRIT [Concomitant]
     Route: 042
  9. FUROSEMID [Concomitant]
     Dosage: DAILY DOSE: 4 DF DOSAGE FORM EVERY DAYS
     Route: 065
  10. CETIRIZINE [Concomitant]
     Dosage: DAILY DOSE: 1 DF DOSAGE FORM EVERY DAYS
     Route: 065
  11. MULTAQ [Suspect]
     Indication: ATRIAL FIBRILLATION
     Dosage: DAILY DOSE: 800 MG MILLGRAM(S) EVERY DAYS
     Route: 048
     Dates: start: 20100501
  12. PANTOPRAZOLE [Concomitant]
     Dosage: DAILY DOSE: 0.5 DF DOSAGE FORM EVERY DAYS
     Route: 065
  13. CALCIUM ACETATE [Concomitant]
     Dosage: DOSAGE: 1-2-1-0
     Route: 065
  14. TAMSULOSIN HCL [Concomitant]
     Dosage: DAILY DOSE: 1 DF DOSAGE FORM EVERY DAYS
     Route: 065

REACTIONS (3)
  - VENTRICULAR TACHYCARDIA [None]
  - OFF LABEL USE [None]
  - ARRHYTHMIA [None]
